FAERS Safety Report 5149974-4 (Version None)
Quarter: 2006Q4

REPORT INFORMATION
  Report Type: 
  Country: None (occurrence: None)
  Receive Date: 20061108
  Receipt Date: 20061026
  Transmission Date: 20070319
  Serious: Yes (Death, Hospitalization, Other)
  Sender: FDA-Public Use
  Company Number: 2006076288

PATIENT
  Age: 73 Year
  Sex: Female

DRUGS (2)
  1. CELEBREX [Suspect]
     Dates: start: 20030101, end: 20040427
  2. VIOXX [Suspect]
     Dates: start: 20030101, end: 20040427

REACTIONS (5)
  - ANOXIA [None]
  - COMA [None]
  - PULMONARY EMBOLISM [None]
  - RESPIRATORY FAILURE [None]
  - THROMBOSIS [None]
